FAERS Safety Report 8284782-7 (Version None)
Quarter: 2012Q2

REPORT INFORMATION
  Report Type: 
  Country: None (occurrence: None)
  Receive Date: 20120413
  Receipt Date: 20110531
  Transmission Date: 20120825
  Serious: No
  Sender: FDA-Public Use
  Company Number: US-ASTRAZENECA-2011SE33708

PATIENT
  Age: 59 Year
  Sex: Female
  Weight: 70.8 kg

DRUGS (2)
  1. NEXIUM [Suspect]
     Indication: DEAFNESS
     Route: 048
  2. NEXIUM [Suspect]
     Indication: REFLUX LARYNGITIS
     Route: 048

REACTIONS (3)
  - ADVERSE EVENT [None]
  - DRUG DOSE OMISSION [None]
  - OFF LABEL USE [None]
